FAERS Safety Report 20767413 (Version 1)
Quarter: 2022Q2

REPORT INFORMATION
  Report Type: Spontaneous
  Country: CN (occurrence: CN)
  Receive Date: 20220429
  Receipt Date: 20220429
  Transmission Date: 20220721
  Serious: Yes (Hospitalization, Other)
  Sender: FDA-Public Use
  Company Number: CN-SA-SAC20220425001688

PATIENT
  Age: 73 Year
  Sex: Female
  Weight: 90 kg

DRUGS (2)
  1. HYDROCHLOROTHIAZIDE\IRBESARTAN [Suspect]
     Active Substance: HYDROCHLOROTHIAZIDE\IRBESARTAN
     Indication: Hypertension
     Dosage: 1DF, QD
     Route: 048
     Dates: start: 20220303, end: 20220316
  2. FUROSEMIDE [Concomitant]
     Active Substance: FUROSEMIDE
     Indication: Oedema
     Dosage: 20MG, TOTAL
     Route: 042
     Dates: start: 20220303, end: 20220303

REACTIONS (2)
  - Arrhythmia [Recovered/Resolved]
  - Hypokalaemia [Recovered/Resolved]
